FAERS Safety Report 4301458-9 (Version None)
Quarter: 2004Q1

REPORT INFORMATION
  Report Type: 
  Country: None (occurrence: None)
  Receive Date: 20040219
  Receipt Date: 20040211
  Transmission Date: 20041129
  Serious: Yes (Other)
  Sender: FDA-Public Use
  Company Number: GBWYE577612FEB04

PATIENT
  Sex: Female

DRUGS (1)
  1. EFFEXOR [Suspect]
     Dosage: DOSES AROUND 300 MG DAILY

REACTIONS (1)
  - HYPERSENSITIVITY [None]
